FAERS Safety Report 17973601 (Version 1)
Quarter: 2020Q3

REPORT INFORMATION
  Report Type: Spontaneous
  Country: GB (occurrence: GB)
  Receive Date: 20200702
  Receipt Date: 20200702
  Transmission Date: 20201103
  Serious: Yes (Life-Threatening)
  Sender: FDA-Public Use
  Company Number: GB-ACCORD-187694

PATIENT
  Age: 85 Year
  Sex: Male

DRUGS (7)
  1. ALLOPURINOL. [Concomitant]
     Active Substance: ALLOPURINOL
  2. DIGOXIN. [Concomitant]
     Active Substance: DIGOXIN
  3. ATORVASTATIN [Concomitant]
     Active Substance: ATORVASTATIN
  4. IVABRADINE/IVABRADINE HYDROCHLORIDE [Concomitant]
     Active Substance: IVABRADINE HYDROCHLORIDE
  5. CLOPIDOGREL [Suspect]
     Active Substance: CLOPIDOGREL BISULFATE
     Indication: CEREBROVASCULAR ACCIDENT PROPHYLAXIS
     Route: 048
  6. ISOSORBIDE. [Concomitant]
     Active Substance: ISOSORBIDE
  7. RAMIPRIL. [Concomitant]
     Active Substance: RAMIPRIL

REACTIONS (1)
  - Cerebrovascular accident [Recovered/Resolved with Sequelae]
